FAERS Safety Report 5371347-X (Version None)
Quarter: 2007Q2

REPORT INFORMATION
  Report Type: 
  Country: None (occurrence: None)
  Receive Date: 20070615
  Receipt Date: 20061208
  Transmission Date: 20071010
  Serious: Yes (Other)
  Sender: FDA-Public Use
  Company Number: 200615898US

PATIENT
  Age: 85 Year
  Sex: Female
  Weight: 58.63 kg

DRUGS (17)
  1. LANTUS [Suspect]
     Indication: DIABETES MELLITUS INSULIN-DEPENDENT
     Dosage: 7 U
     Dates: start: 20060709, end: 20060701
  2. OPTICLIK [Suspect]
     Indication: DIABETES MELLITUS INSULIN-DEPENDENT
     Dates: start: 20060709, end: 20060701
  3. LANTUS [Suspect]
     Indication: DIABETES MELLITUS INSULIN-DEPENDENT
     Dates: start: 20060709, end: 20060701
  4. OPTICLIK [Suspect]
     Indication: DIABETES MELLITUS INSULIN-DEPENDENT
     Dates: start: 20060709, end: 20060701
  5. CARDIZEM [Concomitant]
  6. CARDURA [Suspect]
  7. INSULIN INJECTION, ISOPHANE (NPH INSULIN) [Concomitant]
  8. REGULAR INSULIN [Concomitant]
  9. COZAAR [Concomitant]
  10. SYNTHROID [Concomitant]
  11. BONIVA [Concomitant]
  12. PAXIL [Concomitant]
  13. NEURONTIN [Concomitant]
  14. FLUVASTATIN SODIUM [Concomitant]
  15. MOBIC [Concomitant]
  16. VITAMINS NOS, MINERALS NOS (CENTRUM ACETYLSALICYLIC ACID (ASA) [Concomitant]
  17. CALCIUM CHLORIDE [Concomitant]

REACTIONS (2)
  - BLOOD GLUCOSE INCREASED [None]
  - HYPERGLYCAEMIA [None]
